FAERS Safety Report 7642923-6 (Version None)
Quarter: 2011Q3

REPORT INFORMATION
  Report Type: 
  Country: None (occurrence: None)
  Receive Date: 20110728
  Receipt Date: 20110718
  Transmission Date: 20111222
  Serious: Yes (Hospitalization, Other)
  Sender: FDA-Public Use
  Company Number: PHEH2006US07334

PATIENT
  Sex: Female

DRUGS (45)
  1. AREDIA [Suspect]
     Indication: BREAST CANCER
     Dosage: UNK
     Route: 042
     Dates: start: 20030901, end: 20060107
  2. MICRO-K [Concomitant]
     Dosage: 10 UNK, QID
     Route: 048
  3. DURAGESIC-100 [Concomitant]
     Dosage: 100 UG, 4 PATCHES Q72H TO SKIN
     Route: 062
  4. VIOXX [Concomitant]
  5. RADIATION [Concomitant]
  6. COMPAZINE [Concomitant]
  7. ASPIRIN [Concomitant]
  8. ZOMETA [Suspect]
     Indication: METASTASES TO BONE
     Dosage: 4 MG, UNK
     Dates: start: 20060317, end: 20060317
  9. ANTINEOPLASTIC AGENTS [Concomitant]
  10. LASIX [Concomitant]
     Route: 042
  11. BUSPAR [Concomitant]
  12. ZOLADEX [Concomitant]
  13. BUSPAR [Concomitant]
  14. LEXAPRO [Concomitant]
     Dosage: 20 MG, QD
     Route: 048
  15. MS CONTIN [Concomitant]
  16. GEMCITABINE [Concomitant]
  17. GENTAMYCIN-MP [Concomitant]
  18. PRILOSEC [Concomitant]
  19. TAXOL [Concomitant]
  20. ASPIRIN [Concomitant]
     Dosage: 81 MG, QD
     Route: 048
  21. PERIDEX [Concomitant]
  22. ZOFRAN [Concomitant]
  23. KEFLEX [Concomitant]
  24. ZOMETA [Suspect]
     Dosage: 4 MG, UNK
  25. XANAX [Concomitant]
     Dosage: 0.5 MG, TID
     Route: 048
  26. PHENERGAN ^WYETH-AYERST^ [Concomitant]
     Indication: NAUSEA
     Dosage: 25 MG, Q6H PRN
     Route: 048
  27. INDOMETHACIN [Concomitant]
  28. MARINOL [Concomitant]
     Dosage: 10 MG, BID
     Route: 048
  29. PROCRIT /00909301/ [Concomitant]
     Dosage: 40,000 UNITS, QW
  30. HYDROCODONE BITARTRATE [Concomitant]
     Indication: PAIN IN JAW
     Dosage: 10/650 Q4H
  31. METHADONE HYDROCHLORIDE [Concomitant]
  32. OXYCODONE HCL [Concomitant]
  33. ANZEMET [Concomitant]
  34. GEMCITABINE HYDROCHLORIDE [Concomitant]
     Indication: BREAST CANCER
     Dosage: 1000 MG/M2 WEEKLY
     Dates: start: 20051024, end: 20060324
  35. LASIX [Concomitant]
     Dosage: 80 MG, QD
     Route: 048
  36. PREDNISONE [Concomitant]
  37. ROCEPHIN [Concomitant]
  38. MULTI-VITAMIN [Concomitant]
  39. ACTIQ [Concomitant]
  40. SYNTHROID [Concomitant]
     Dosage: 0.05 MG, QD
     Route: 048
  41. PROTONIX [Concomitant]
  42. VANCOMYCIN [Concomitant]
  43. LEVOTHYROXINE SODIUM [Concomitant]
  44. CYCLOBENZAPRINE [Concomitant]
  45. SPIRONOLACTONE [Concomitant]

REACTIONS (71)
  - MULTIPLE FRACTURES [None]
  - OEDEMA PERIPHERAL [None]
  - TENDERNESS [None]
  - BONE DISORDER [None]
  - RHINITIS ALLERGIC [None]
  - GLYCOSYLATED HAEMOGLOBIN INCREASED [None]
  - MUSCULOSKELETAL CHEST PAIN [None]
  - MYCOBACTERIUM TUBERCULOSIS COMPLEX TEST POSITIVE [None]
  - CHOLECYSTITIS [None]
  - OEDEMA [None]
  - WEIGHT DECREASED [None]
  - OSTEONECROSIS OF JAW [None]
  - DECREASED INTEREST [None]
  - PEPTOSTREPTOCOCCUS INFECTION [None]
  - BONE MARROW FAILURE [None]
  - LEUKOPENIA [None]
  - CORONARY ARTERY DISEASE [None]
  - HYPERTENSION [None]
  - IMPAIRED HEALING [None]
  - GENERAL PHYSICAL HEALTH DETERIORATION [None]
  - BONE PAIN [None]
  - HIP FRACTURE [None]
  - HYPOKALAEMIA [None]
  - ORAL CANDIDIASIS [None]
  - GALLBLADDER CHOLESTEROLOSIS [None]
  - OSTEOPENIA [None]
  - STREPTOCOCCAL INFECTION [None]
  - MALNUTRITION [None]
  - ERYTHEMA [None]
  - ANXIETY [None]
  - PAIN IN JAW [None]
  - SEROMA [None]
  - THROMBOCYTOPENIA [None]
  - DEVICE RELATED INFECTION [None]
  - SINUS TACHYCARDIA [None]
  - LIVER FUNCTION TEST ABNORMAL [None]
  - PYREXIA [None]
  - HYPERCALCAEMIA [None]
  - UPPER RESPIRATORY TRACT INFECTION [None]
  - NEUTROPENIA [None]
  - HYPOALBUMINAEMIA [None]
  - HYPOAESTHESIA [None]
  - PARAESTHESIA [None]
  - INCREASED TENDENCY TO BRUISE [None]
  - GINGIVAL INFECTION [None]
  - VASCULITIS [None]
  - PROTHROMBIN TIME PROLONGED [None]
  - STREPTOCOCCAL SEPSIS [None]
  - WOUND COMPLICATION [None]
  - INFLAMMATION [None]
  - BACTERIAL INFECTION [None]
  - DENTAL FISTULA [None]
  - BLOOD GLUCOSE INCREASED [None]
  - METASTASES TO BONE [None]
  - BREAST CANCER METASTATIC [None]
  - FIBULA FRACTURE [None]
  - OSTEOMYELITIS [None]
  - IMPLANT SITE DISCHARGE [None]
  - NEUROPATHY PERIPHERAL [None]
  - BRONCHITIS [None]
  - HYPERGLYCAEMIA [None]
  - POLLAKIURIA [None]
  - DEPRESSION [None]
  - GAIT DISTURBANCE [None]
  - PATHOLOGICAL FRACTURE [None]
  - LYMPHOEDEMA [None]
  - TOOTH INFECTION [None]
  - CONSTIPATION [None]
  - ANAEMIA [None]
  - HYPOPROTEINAEMIA [None]
  - PLATELET COUNT INCREASED [None]
